FAERS Safety Report 5591525-4 (Version None)
Quarter: 2008Q1

REPORT INFORMATION
  Report Type: 
  Country: None (occurrence: None)
  Receive Date: 20080115
  Receipt Date: 20080111
  Transmission Date: 20080703
  Serious: Yes (Death, Hospitalization)
  Sender: FDA-Public Use
  Company Number: US-GENENTECH-253713

PATIENT
  Sex: Female

DRUGS (2)
  1. EFALIZUMAB [Suspect]
     Indication: GRAFT VERSUS HOST DISEASE
     Dosage: 60 MG, UNK
     Dates: start: 20070618
  2. EFALIZUMAB [Suspect]
     Dosage: 40 MG, UNK
     Dates: start: 20070625, end: 20070806

REACTIONS (2)
  - PNEUMONIA [None]
  - RESPIRATORY FAILURE [None]
